FAERS Safety Report 13122769 (Version 1)
Quarter: 2017Q1

REPORT INFORMATION
  Report Type: Spontaneous
  Country: FR (occurrence: FR)
  Receive Date: 20170117
  Receipt Date: 20170117
  Transmission Date: 20170428
  Serious: Yes (Other)
  Sender: FDA-Public Use
  Company Number: FR-MYLANLABS-2017M1001889

PATIENT

DRUGS (8)
  1. TACROLIMUS. [Suspect]
     Active Substance: TACROLIMUS
     Indication: IMMUNOSUPPRESSANT DRUG THERAPY
     Route: 065
  2. BRINCIDOFOVIR [Suspect]
     Active Substance: BRINCIDOFOVIR
     Indication: CYTOMEGALOVIRUS INFECTION
     Route: 065
     Dates: start: 201509
  3. EVEROLIMUS [Suspect]
     Active Substance: EVEROLIMUS
     Indication: CYTOMEGALOVIRUS INFECTION
     Route: 065
     Dates: start: 201509
  4. FOSCARNET [Suspect]
     Active Substance: FOSCARNET
     Indication: CYTOMEGALOVIRUS INFECTION
     Route: 065
  5. URAPIDIL [Concomitant]
     Active Substance: URAPIDIL
     Indication: HYPOKALAEMIA
     Route: 065
  6. PREDNISONE. [Concomitant]
     Active Substance: PREDNISONE
     Indication: PRODUCT USED FOR UNKNOWN INDICATION
     Dosage: 5MG
     Route: 065
  7. CICLOSPORIN [Concomitant]
     Active Substance: CYCLOSPORINE
     Indication: PRODUCT USED FOR UNKNOWN INDICATION
     Dosage: INITIAL DOSE NOT STATED
     Route: 065
  8. BISOPROLOL [Concomitant]
     Active Substance: BISOPROLOL
     Indication: HYPOKALAEMIA
     Dosage: 10MG DAILY
     Route: 065

REACTIONS (4)
  - Hypokalaemia [Unknown]
  - Overdose [Unknown]
  - Acute kidney injury [Unknown]
  - Thrombotic microangiopathy [Unknown]
